FAERS Safety Report 24990657 (Version 2)
Quarter: 2025Q2

REPORT INFORMATION
  Report Type: Spontaneous
  Country: AU (occurrence: AU)
  Receive Date: 20250220
  Receipt Date: 20250602
  Transmission Date: 20250717
  Serious: No
  Sender: MYLAN
  Company Number: AU-MYLANLABS-2025M1014957

PATIENT
  Sex: Male

DRUGS (1)
  1. CLOZARIL [Suspect]
     Active Substance: CLOZAPINE
     Indication: Schizophrenia

REACTIONS (5)
  - Benign ethnic neutropenia [Unknown]
  - Hyperlipidaemia [Unknown]
  - Weight increased [Unknown]
  - Troponin increased [Unknown]
  - Off label use [Unknown]

NARRATIVE: CASE EVENT DATE: 20250101
